FAERS Safety Report 12183914 (Version 2)
Quarter: 2016Q2

REPORT INFORMATION
  Report Type: Spontaneous
  Country: US (occurrence: US)
  Receive Date: 20160316
  Receipt Date: 20160405
  Transmission Date: 20160815
  Serious: Yes (Death, Hospitalization, Other)
  Sender: FDA-Public Use
  Company Number: US-ACORDA-ACO_122308_2016

PATIENT
  Age: 45 Year
  Sex: Female
  Weight: 50.79 kg

DRUGS (19)
  1. GABAPENTIN. [Concomitant]
     Active Substance: GABAPENTIN
     Indication: RESTLESS LEGS SYNDROME
  2. TAMSULOSIN HCL [Concomitant]
     Active Substance: TAMSULOSIN
     Indication: BLADDER DISORDER
     Dosage: .4 MG, QD
     Route: 048
     Dates: start: 2010, end: 201506
  3. DURAGESIC [Concomitant]
     Active Substance: FENTANYL
     Indication: PRODUCT USED FOR UNKNOWN INDICATION
     Dosage: 50 ?G, UNK
  4. PRILOSEC [Concomitant]
     Active Substance: OMEPRAZOLE MAGNESIUM
     Indication: PRODUCT USED FOR UNKNOWN INDICATION
     Dosage: 20 MG, QD
     Route: 048
  5. VITAMIN D [Concomitant]
     Active Substance: CHOLECALCIFEROL
     Indication: PRODUCT USED FOR UNKNOWN INDICATION
     Dosage: 1000 IU, QD
     Route: 048
  6. IMITREX [Concomitant]
     Active Substance: SUMATRIPTAN SUCCINATE
     Indication: HEADACHE
     Dosage: 100 MG, PRN
     Route: 048
  7. OMEPRAZOLE. [Concomitant]
     Active Substance: OMEPRAZOLE
     Dosage: 20 MG, QD
     Route: 048
     Dates: start: 2010, end: 201506
  8. OXYCODONE [Concomitant]
     Active Substance: OXYCODONE
     Indication: PAIN
     Dosage: 10 MG, Q 3 HRS, PRN
     Route: 048
     Dates: start: 201501, end: 201506
  9. FLOMAX [Concomitant]
     Active Substance: TAMSULOSIN HYDROCHLORIDE
     Indication: PRODUCT USED FOR UNKNOWN INDICATION
     Dosage: 0.4 MG, BID
     Route: 048
  10. TYSABRI [Concomitant]
     Active Substance: NATALIZUMAB
     Indication: MULTIPLE SCLEROSIS
     Dosage: 300 MG, MONTHLY
     Route: 042
     Dates: start: 2008, end: 201411
  11. GABAPENTIN. [Concomitant]
     Active Substance: GABAPENTIN
     Indication: PAIN
     Dosage: 600 MG, BID - TID
     Route: 048
     Dates: start: 2009, end: 201506
  12. AMITIZA [Concomitant]
     Active Substance: LUBIPROSTONE
     Indication: GASTROINTESTINAL DISORDER
     Dosage: 24 ?G, BID
     Route: 048
     Dates: end: 201506
  13. METHADONE HCL [Concomitant]
     Active Substance: METHADONE HYDROCHLORIDE
     Indication: PAIN
     Dosage: 2.5 MG, HS
     Route: 048
     Dates: start: 201501, end: 201506
  14. COLACE [Concomitant]
     Active Substance: DOCUSATE SODIUM
     Indication: CONSTIPATION
     Dosage: 100 MG, BID
     Route: 048
  15. AMPYRA [Suspect]
     Active Substance: DALFAMPRIDINE
     Indication: GAIT DISTURBANCE
     Dosage: 10 MG, BID
     Route: 048
     Dates: start: 201402, end: 201506
  16. METHADONE HCL [Concomitant]
     Active Substance: METHADONE HYDROCHLORIDE
     Dosage: 5 MG, HS
     Route: 048
  17. DURAGESIC [Concomitant]
     Active Substance: FENTANYL
     Dosage: 75 ?G, Q 48 HRS
     Route: 062
  18. MIRALAX [Concomitant]
     Active Substance: POLYETHYLENE GLYCOL 3350
     Indication: CONSTIPATION
     Dosage: 17 G, QD
     Route: 048
  19. OLUX [Concomitant]
     Active Substance: CLOBETASOL PROPIONATE
     Indication: PRODUCT USED FOR UNKNOWN INDICATION
     Dosage: 1 DF, UNK
     Route: 061

REACTIONS (15)
  - Dyspnoea [Unknown]
  - Myalgia [Not Recovered/Not Resolved]
  - Abdominal pain [Not Recovered/Not Resolved]
  - Pain [Unknown]
  - Cough [Unknown]
  - Fatigue [Unknown]
  - Restless legs syndrome [Unknown]
  - Anxiety [Not Recovered/Not Resolved]
  - Somnolence [Unknown]
  - Condition aggravated [Unknown]
  - Constipation [Unknown]
  - Nausea [Not Recovered/Not Resolved]
  - Lung cancer metastatic [Fatal]
  - Weight decreased [Recovered/Resolved]
  - Chest pain [Not Recovered/Not Resolved]

NARRATIVE: CASE EVENT DATE: 201412
